FAERS Safety Report 9759951 (Version 1)
Quarter: 2013Q4

REPORT INFORMATION
  Report Type: Spontaneous
  Country: GB (occurrence: GB)
  Receive Date: 20131216
  Receipt Date: 20131216
  Transmission Date: 20140711
  Serious: Yes (Death, Hospitalization, Other)
  Sender: FDA-Public Use
  Company Number: GB-009507513-1312GBR004718

PATIENT
  Age: 87 Year
  Sex: Male
  Weight: 68 kg

DRUGS (9)
  1. SIMVASTATIN [Suspect]
     Indication: HYPERCHOLESTEROLAEMIA
     Dosage: 40 MG, QD
     Route: 048
     Dates: start: 2012
  2. SIMVASTATIN [Interacting]
     Dosage: 40 MG, QD
     Route: 048
     Dates: end: 20130218
  3. CLARITHROMYCIN [Interacting]
     Indication: STAPHYLOCOCCAL INFECTION
     Dosage: 500 MG, BID
     Route: 048
     Dates: start: 20121101, end: 20130211
  4. CLARITHROMYCIN [Interacting]
     Indication: OSTEOMYELITIS
  5. FUSIDIC ACID [Interacting]
     Indication: STAPHYLOCOCCAL INFECTION
     Dosage: 500 MG, TID
     Route: 048
     Dates: start: 20121220, end: 20130211
  6. FUSIDIC ACID [Interacting]
     Indication: OSTEOMYELITIS
  7. LANSOPRAZOLE [Suspect]
     Dosage: UNK
  8. ASPIRIN [Concomitant]
     Dosage: UNK
  9. INSULIN GLARGINE [Concomitant]
     Dosage: UNK

REACTIONS (5)
  - Renal failure acute [Fatal]
  - Sepsis [Fatal]
  - Rhabdomyolysis [Fatal]
  - Drug interaction [Unknown]
  - Incorrect drug administration duration [Unknown]
